FAERS Safety Report 9827247 (Version 1)
Quarter: 2014Q1

REPORT INFORMATION
  Report Type: Spontaneous
  Country: US (occurrence: US)
  Receive Date: 20140117
  Receipt Date: 20140117
  Transmission Date: 20141002
  Serious: No
  Sender: FDA-Public Use
  Company Number: US-BRISTOL-MYERS SQUIBB COMPANY-19685940

PATIENT
  Age: 83 Year
  Sex: Female

DRUGS (3)
  1. YERVOY [Suspect]
     Indication: MALIGNANT MELANOMA
     Dosage: INJ.?LAST TREATMENT :JANUARY 2012
  2. AMLODIPINE [Concomitant]
  3. ATENOLOL [Concomitant]

REACTIONS (8)
  - Abdominal pain upper [Unknown]
  - Diarrhoea [Unknown]
  - Haematochezia [Unknown]
  - Vision blurred [Unknown]
  - Ocular hyperaemia [Unknown]
  - Anosmia [Unknown]
  - Ageusia [Unknown]
  - Memory impairment [Unknown]
